FAERS Safety Report 5487823-5 (Version None)
Quarter: 2007Q4

REPORT INFORMATION
  Report Type: 
  Country: None (occurrence: None)
  Receive Date: 20071017
  Receipt Date: 20071012
  Transmission Date: 20080405
  Serious: Yes (Death)
  Sender: FDA-Public Use
  Company Number: JP-ALLERGAN-0709641US

PATIENT
  Sex: Male

DRUGS (2)
  1. BOTULINUM TOXIN TYPE A - GENERAL [Suspect]
     Indication: TORTICOLLIS
     Dosage: 85 UNITS, SINGLE
     Route: 030
     Dates: start: 20070628, end: 20070628
  2. MORPHINE SULFATE [Concomitant]

REACTIONS (3)
  - OESOPHAGEAL CARCINOMA RECURRENT [None]
  - PNEUMONIA [None]
  - TRACHEAL STENOSIS [None]
